FAERS Safety Report 8116717-1 (Version None)
Quarter: 2012Q1

REPORT INFORMATION
  Report Type: 
  Country: None (occurrence: None)
  Receive Date: 20120206
  Receipt Date: 20120130
  Transmission Date: 20120608
  Serious: Yes (Hospitalization)
  Sender: FDA-Public Use
  Company Number: PHEH2011US011633

PATIENT
  Sex: Male

DRUGS (26)
  1. TRACLEER [Concomitant]
     Dosage: 125 MG, BID
     Route: 048
  2. CALCIUM CARBONATE [Concomitant]
     Dosage: 200 MG, BID
     Route: 048
  3. MEGACE [Concomitant]
     Dosage: 40 MG, DAILY
     Route: 048
  4. SOMATROPIN [Concomitant]
  5. CALCITRIOL [Concomitant]
     Dosage: 0.25 UG, DAILY
     Route: 048
  6. CIPROFLOXACIN [Concomitant]
     Dosage: 4500 MG, BID
     Route: 048
  7. METHADONE HCL [Concomitant]
     Dosage: 10 MG, EVERY 8 H AS NEEDED
  8. IBUPROFEN [Concomitant]
     Dosage: 600 MG, WVER 6 H AS NEEDED
     Route: 048
  9. DULCOLAX [Concomitant]
     Dosage: 5 MG, PRN
     Route: 048
  10. BENADRYL [Concomitant]
     Dosage: 25 MG, EVERY 6 HOURS AS NEEDED
  11. COLACE [Concomitant]
     Dosage: 100 MG, BID
     Route: 048
  12. FOLVITE [Concomitant]
     Dosage: 250 MG, DAILY
     Route: 048
  13. MORPHINE [Concomitant]
     Dosage: 15 MG, PRN
  14. CARAFATE [Concomitant]
     Dosage: 1 G, TID
     Route: 048
  15. NEXIUM [Concomitant]
     Dosage: 40 MG, BID
     Route: 048
  16. HYDREA [Concomitant]
     Dosage: 1000 MG, DAILY
     Route: 048
  17. ALBUTEROL [Concomitant]
  18. ROCALTROL [Concomitant]
     Dosage: 0.5 MG, DAILY
     Route: 048
  19. FLEXERIL [Concomitant]
     Dosage: 10 MG, TID
     Route: 048
  20. MIRALAX [Concomitant]
     Dosage: 17 G, DAILY
     Route: 048
  21. IBUPROFEN (ADVIL) [Concomitant]
     Dosage: 600 MG, EVERY 6 H AS NEEDED
  22. TRACLEER [Concomitant]
     Dosage: 125 MG, BID
     Route: 048
  23. GRISEOFULVIN [Concomitant]
     Dosage: 250 MG, DAILY
     Route: 048
  24. EXJADE [Suspect]
     Dosage: 1250 MG, QD
     Route: 048
  25. BACTRIM [Concomitant]
  26. FOLIC ACID [Concomitant]
     Dosage: 1 MG, DAILY
     Route: 048

REACTIONS (14)
  - PULMONARY HYPERTENSION [None]
  - SICKLE CELL ANAEMIA WITH CRISIS [None]
  - ABSCESS [None]
  - PAIN [None]
  - BLOOD BILIRUBIN UNCONJUGATED INCREASED [None]
  - HAEMOLYTIC ANAEMIA [None]
  - BLOOD ALKALINE PHOSPHATASE INCREASED [None]
  - BLOOD GLUCOSE INCREASED [None]
  - TINEA CAPITIS [None]
  - BLOOD LACTATE DEHYDROGENASE INCREASED [None]
  - STAPHYLOCOCCAL INFECTION [None]
  - BLOOD BILIRUBIN INCREASED [None]
  - PLATELET COUNT INCREASED [None]
  - WHITE BLOOD CELL COUNT INCREASED [None]
